FAERS Safety Report 8091567-3 (Version None)
Quarter: 2012Q1

REPORT INFORMATION
  Report Type: 
  Country: None (occurrence: None)
  Receive Date: 20120131
  Receipt Date: 20120127
  Transmission Date: 20120608
  Serious: No
  Sender: FDA-Public Use
  Company Number: US-PFIZER INC-2011284126

PATIENT
  Sex: Female
  Weight: 57.596 kg

DRUGS (2)
  1. ALBUTEROL [Concomitant]
     Indication: CHRONIC OBSTRUCTIVE PULMONARY DISEASE
     Dosage: UNK
  2. CHANTIX [Suspect]
     Indication: SMOKING CESSATION THERAPY
     Dosage: UNK
     Route: 048
     Dates: start: 20111101

REACTIONS (3)
  - BLOOD CHOLESTEROL INCREASED [None]
  - ABNORMAL DREAMS [None]
  - NAUSEA [None]
